FAERS Safety Report 5573902-0 (Version None)
Quarter: 2007Q4

REPORT INFORMATION
  Report Type: 
  Country: None (occurrence: None)
  Receive Date: 20071220
  Receipt Date: 20071212
  Transmission Date: 20080405
  Serious: Yes (Disabling)
  Sender: FDA-Public Use
  Company Number: OSCN-PR-0712S-0494

PATIENT
  Sex: Male

DRUGS (2)
  1. OMNISCAN [Suspect]
     Indication: DRUG USE FOR UNKNOWN INDICATION
     Dosage: SINGLE DOSE, I.V., SINGLE DOSE, I.V.
     Route: 042
     Dates: start: 20030917, end: 20030917
  2. OMNISCAN [Suspect]
     Indication: DRUG USE FOR UNKNOWN INDICATION
     Dosage: SINGLE DOSE, I.V., SINGLE DOSE, I.V.
     Route: 042
     Dates: start: 20031209, end: 20031209

REACTIONS (1)
  - NEPHROGENIC SYSTEMIC FIBROSIS [None]
